FAERS Safety Report 6096991-6 (Version None)
Quarter: 2009Q1

REPORT INFORMATION
  Report Type: 
  Country: None (occurrence: None)
  Receive Date: 20090227
  Receipt Date: 20090213
  Transmission Date: 20090719
  Serious: Yes (Hospitalization, Other)
  Sender: FDA-Public Use
  Company Number: PHRM2007FR01082

PATIENT
  Age: 67 Year
  Sex: Male

DRUGS (3)
  1. NISISCO [Suspect]
     Indication: HYPERTENSION
     Dosage: UNK
     Route: 048
     Dates: start: 20060701, end: 20061201
  2. LOGIMAX [Suspect]
     Indication: HYPERTENSION
     Route: 048
     Dates: start: 20060701, end: 20061201
  3. AVANDAMET [Suspect]
     Indication: TYPE 2 DIABETES MELLITUS
     Dosage: UNK
     Route: 048
     Dates: start: 20060701, end: 20061201

REACTIONS (11)
  - ALPHA 2 GLOBULIN INCREASED [None]
  - BETA GLOBULIN DECREASED [None]
  - BIOPSY KIDNEY ABNORMAL [None]
  - BLOOD ALBUMIN DECREASED [None]
  - BLOOD IMMUNOGLOBULIN M [None]
  - GENERALISED OEDEMA [None]
  - GLOMERULONEPHRITIS MEMBRANOUS [None]
  - HYPOGAMMAGLOBULINAEMIA [None]
  - NEPHROTIC SYNDROME [None]
  - PROTEIN URINE PRESENT [None]
  - WEIGHT INCREASED [None]
